FAERS Safety Report 8183652-2 (Version None)
Quarter: 2012Q1

REPORT INFORMATION
  Report Type: 
  Country: None (occurrence: None)
  Receive Date: 20120130
  Receipt Date: 20111021
  Transmission Date: 20120608
  Serious: Yes (Hospitalization)
  Sender: FDA-Public Use
  Company Number: 044164

PATIENT
  Age: 40 Year
  Sex: Female
  Weight: 59 kg

DRUGS (9)
  1. TEGRETOL [Concomitant]
  2. OXCARBAZEPINE [Concomitant]
  3. LAMOTRIGINE [Concomitant]
  4. DIVALPROEX SODIUM [Concomitant]
  5. LEVETIRACETAM [Suspect]
     Indication: CONVULSION
  6. DIASTAT [Concomitant]
  7. PHENYTOIN [Concomitant]
  8. KLONOPIN [Concomitant]
  9. TOPIRAMATE [Concomitant]

REACTIONS (1)
  - PANCREATITIS [None]
